FAERS Safety Report 7402707-0 (Version None)
Quarter: 2011Q1

REPORT INFORMATION
  Report Type: 
  Country: None (occurrence: None)
  Receive Date: 20110329
  Receipt Date: 20110315
  Transmission Date: 20110831
  Serious: Yes (Other)
  Sender: FDA-Public Use
  Company Number: JPI-P-014220

PATIENT
  Age: 66 Year
  Sex: Female
  Weight: 79.3795 kg

DRUGS (1)
  1. XYREM [Suspect]
     Indication: CATAPLEXY
     Dosage: ORAL ; (4 GM FIRST DOSE/3.75 GM SECOND DOSE),ORAL
     Route: 048
     Dates: start: 20060202

REACTIONS (3)
  - FALL [None]
  - FEMUR FRACTURE [None]
  - STAPHYLOCOCCAL INFECTION [None]
